FAERS Safety Report 9303752 (Version 1)
Quarter: 2013Q2

REPORT INFORMATION
  Report Type: Spontaneous
  Country: CN (occurrence: CN)
  Receive Date: 20130522
  Receipt Date: 20130522
  Transmission Date: 20140414
  Serious: Yes (Other)
  Sender: FDA-Public Use
  Company Number: CN-ASTRAZENECA-2013SE35598

PATIENT
  Age: 83 Month
  Sex: Male
  Weight: 20.5 kg

DRUGS (7)
  1. BUDESONIDE [Suspect]
     Indication: BRONCHITIS
     Route: 055
     Dates: start: 20120103, end: 20120106
  2. TERBUTALINE SULFATE [Suspect]
     Indication: BRONCHITIS
     Dates: start: 20120103, end: 20120109
  3. AZITHROMYCIN [Suspect]
     Indication: MYCOPLASMA INFECTION
     Route: 048
     Dates: start: 20120104, end: 20120106
  4. AMOXICILLIN SODIUM [Suspect]
     Indication: INFECTION
     Route: 041
     Dates: start: 20120102, end: 20120109
  5. CLAVULANATE POTASSIUM [Suspect]
     Indication: INFECTION
     Route: 041
     Dates: start: 20130102, end: 20130109
  6. IPRATROPIUM BROMIDE [Suspect]
     Indication: BRONCHITIS
     Dates: start: 20120103, end: 20120109
  7. AEROSOL INHALATION [Concomitant]
     Indication: INFLAMMATION
     Route: 055

REACTIONS (2)
  - Leukopenia [Recovering/Resolving]
  - Neutropenia [Recovering/Resolving]
